FAERS Safety Report 4613361-5 (Version None)
Quarter: 2005Q1

REPORT INFORMATION
  Report Type: 
  Country: None (occurrence: None)
  Receive Date: 20050316
  Receipt Date: 20050225
  Transmission Date: 20050727
  Serious: Yes (Other)
  Sender: FDA-Public Use
  Company Number: FR_040904665

PATIENT
  Age: 73 Year
  Sex: Male

DRUGS (8)
  1. PERGOLIDE MESYLATE [Suspect]
     Indication: PARKINSON'S DISEASE
     Dosage: 3 MG DAY
     Dates: start: 20020303, end: 20040614
  2. MODOPAR [Concomitant]
  3. MANTADIX (AMANTADINE HYDROCHLORIDE) [Concomitant]
  4. COMTAN [Concomitant]
  5. ANAFRANIL [Concomitant]
  6. DEPAKOTE [Concomitant]
  7. ZOLPIDEM TARTRATE [Concomitant]
  8. MOTILIUM (DOMPERIDONE MALEATE) [Concomitant]

REACTIONS (9)
  - AORTIC ATHEROSCLEROSIS [None]
  - AORTIC DILATATION [None]
  - AORTIC VALVE INCOMPETENCE [None]
  - CARDIAC FAILURE [None]
  - CARDIOMEGALY [None]
  - DYSPNOEA [None]
  - OEDEMA PERIPHERAL [None]
  - PALPITATIONS [None]
  - VENTRICULAR HYPERTROPHY [None]
